FAERS Safety Report 15866578 (Version 1)
Quarter: 2019Q1

REPORT INFORMATION
  Report Type: Spontaneous
  Country: US (occurrence: US)
  Receive Date: 20190125
  Receipt Date: 20190125
  Transmission Date: 20190417
  Serious: Yes (Hospitalization, Other)
  Sender: FDA-Public Use
  Company Number: US-009507513-1901USA006666

PATIENT
  Sex: Male

DRUGS (12)
  1. ACYCLOVIR. [Concomitant]
     Active Substance: ACYCLOVIR
     Dosage: UNK
  2. CARVEDILOL. [Concomitant]
     Active Substance: CARVEDILOL
     Dosage: UNK
  3. FLOMAX [Concomitant]
     Active Substance: TAMSULOSIN HYDROCHLORIDE
     Dosage: UNK
  4. NORVASC [Concomitant]
     Active Substance: AMLODIPINE BESYLATE
     Dosage: UNK
  5. PREDNISONE. [Concomitant]
     Active Substance: PREDNISONE
     Dosage: UNK
  6. TACROLIMUS. [Concomitant]
     Active Substance: TACROLIMUS
     Dosage: UNK
  7. ICLUSIG [Suspect]
     Active Substance: PONATINIB
     Indication: MYELOID LEUKAEMIA
     Dosage: 15 MG, QD
     Route: 048
     Dates: start: 20170803
  8. PANTOPRAZOLE [Concomitant]
     Active Substance: PANTOPRAZOLE
     Dosage: UNK
  9. ASPIRIN. [Concomitant]
     Active Substance: ASPIRIN
     Dosage: UNK
  10. COZAAR [Suspect]
     Active Substance: LOSARTAN POTASSIUM
     Indication: BLOOD PRESSURE ABNORMAL
     Dosage: UNK
     Route: 048
  11. LIPITOR [Concomitant]
     Active Substance: ATORVASTATIN CALCIUM
     Dosage: UNK
  12. IMBRUVICA [Concomitant]
     Active Substance: IBRUTINIB
     Dosage: UNK

REACTIONS (18)
  - Pneumonia [Unknown]
  - Glare [Unknown]
  - Renal disorder [Unknown]
  - Myalgia [Unknown]
  - Blood creatinine increased [Unknown]
  - Sinusitis [Unknown]
  - Blood potassium abnormal [Unknown]
  - Arthralgia [Unknown]
  - Blood pressure increased [Unknown]
  - Blood alkaline phosphatase increased [Unknown]
  - Swelling [Unknown]
  - Nasopharyngitis [Unknown]
  - Graft versus host disease [Unknown]
  - Respiratory failure [Unknown]
  - Pleural effusion [Unknown]
  - Weight increased [Unknown]
  - Visual impairment [Unknown]
  - Fatigue [Unknown]
